FAERS Safety Report 11137516 (Version 1)
Quarter: 2015Q2

REPORT INFORMATION
  Report Type: Spontaneous
  Country: US (occurrence: US)
  Receive Date: 20150526
  Receipt Date: 20150526
  Transmission Date: 20150821
  Serious: Yes (Hospitalization)
  Sender: FDA-Public Use
  Company Number: US-ELI_LILLY_AND_COMPANY-US201505006930

PATIENT
  Sex: Female
  Weight: 54.42 kg

DRUGS (3)
  1. ADCIRCA [Suspect]
     Active Substance: TADALAFIL
     Indication: PRODUCT USED FOR UNKNOWN INDICATION
     Dosage: UNK, UNKNOWN
     Route: 065
  2. TYVASO [Suspect]
     Active Substance: TREPROSTINIL
     Indication: PULMONARY HYPERTENSION
     Dosage: UNK, QID
     Route: 055
     Dates: start: 20150210
  3. OPSUMIT [Concomitant]
     Active Substance: MACITENTAN

REACTIONS (5)
  - Oxygen saturation decreased [Unknown]
  - Pneumonia [Unknown]
  - Pyrexia [Unknown]
  - Depressed mood [Unknown]
  - Dyspnoea [Unknown]
